FAERS Safety Report 21793562 (Version 1)
Quarter: 2022Q4

REPORT INFORMATION
  Report Type: Spontaneous
  Country: DE (occurrence: DE)
  Receive Date: 20221229
  Receipt Date: 20221229
  Transmission Date: 20230112
  Serious: Yes (Hospitalization, Congenital Anomaly, Other)
  Sender: FDA-Public Use
  Company Number: None

PATIENT
  Age: 0 Year
  Sex: Male
  Weight: 3.07 kg

DRUGS (1)
  1. LEVETIRACETAM [Suspect]
     Active Substance: LEVETIRACETAM
     Dosage: 3000 (MG/D )/ INITIAL 2000MG DAILY, DOSAGE INCREASED FROM WEEK 14+4 TO 3000MG DAILY
     Route: 064
     Dates: start: 20201005, end: 20210716

REACTIONS (3)
  - Ventricular septal defect [Recovered/Resolved with Sequelae]
  - Foetal exposure during pregnancy [Unknown]
  - Atrial septal defect [Recovered/Resolved with Sequelae]
